FAERS Safety Report 8434902-6 (Version None)
Quarter: 2012Q2

REPORT INFORMATION
  Report Type: 
  Country: None (occurrence: None)
  Receive Date: 20120614
  Receipt Date: 20120606
  Transmission Date: 20120825
  Serious: No
  Sender: FDA-Public Use
  Company Number: US-PFIZER INC-2012137111

PATIENT
  Sex: Female

DRUGS (4)
  1. AZITHROMYCIN [Suspect]
     Dosage: UNK
  2. COMPAZINE [Suspect]
     Dosage: UNK
  3. DICLOFENAC SODIUM [Suspect]
     Dosage: UNK
  4. REGLAN [Suspect]
     Dosage: UNK

REACTIONS (3)
  - DRUG HYPERSENSITIVITY [None]
  - FOOD ALLERGY [None]
  - MILK ALLERGY [None]
